FAERS Safety Report 7927944-8 (Version None)
Quarter: 2011Q4

REPORT INFORMATION
  Report Type: 
  Country: None (occurrence: None)
  Receive Date: 20111118
  Receipt Date: 20111021
  Transmission Date: 20120403
  Serious: Yes (Death, Hospitalization)
  Sender: FDA-Public Use
  Company Number: BE-EISAI INC-E7389-01256-CLI-BE

PATIENT
  Sex: Female
  Weight: 80 kg

DRUGS (8)
  1. EPIRUBICIN HYDROCHLORIDE [Suspect]
     Indication: BREAST CANCER
     Route: 041
     Dates: start: 20110516, end: 20110531
  2. DUOVENT [Concomitant]
     Route: 055
     Dates: start: 20080430, end: 20110531
  3. D-CURE [Concomitant]
     Route: 048
     Dates: start: 20081223
  4. LYRICA [Concomitant]
     Route: 048
     Dates: start: 20100617
  5. SYMBICORT [Concomitant]
     Route: 055
     Dates: start: 20100508
  6. OMEPRAZOLE [Concomitant]
     Route: 048
     Dates: start: 20100503
  7. CYMBALTA [Concomitant]
     Route: 048
     Dates: start: 20081223
  8. SPIRIVA [Concomitant]
     Route: 055
     Dates: start: 20100430

REACTIONS (1)
  - CHRONIC OBSTRUCTIVE PULMONARY DISEASE [None]
